FAERS Safety Report 11184580 (Version 2)
Quarter: 2015Q3

REPORT INFORMATION
  Report Type: Spontaneous
  Country: FR (occurrence: FR)
  Receive Date: 20150612
  Receipt Date: 20150701
  Transmission Date: 20151125
  Serious: Yes (Hospitalization)
  Sender: FDA-Public Use
  Company Number: FR-PFIZER INC-2015188663

PATIENT
  Age: 18 Year
  Sex: Female

DRUGS (3)
  1. RHINADVIL [Suspect]
     Active Substance: IBUPROFEN\PSEUDOEPHEDRINE HYDROCHLORIDE
     Dosage: 6 DF, SINGLE
     Route: 048
     Dates: start: 20150419, end: 20150419
  2. PARACETAMOL [Suspect]
     Active Substance: ACETAMINOPHEN
     Dosage: 20 G, SINGLE
     Route: 048
     Dates: start: 20150419, end: 20150419
  3. HUMEX /00048102/ [Suspect]
     Active Substance: DEXTROMETHORPHAN HYDROBROMIDE
     Dosage: 16 DF, SINGLE
     Route: 048
     Dates: start: 20150419, end: 20150419

REACTIONS (4)
  - Abdominal pain [Recovered/Resolved]
  - Intentional overdose [Recovered/Resolved]
  - Gastrointestinal disorder [Recovered/Resolved]
  - Hepatocellular injury [Recovered/Resolved]

NARRATIVE: CASE EVENT DATE: 20150419
